FAERS Safety Report 8390172-9 (Version None)
Quarter: 2012Q2

REPORT INFORMATION
  Report Type: 
  Country: None (occurrence: None)
  Receive Date: 20120529
  Receipt Date: 20120515
  Transmission Date: 20120825
  Serious: Yes (Other)
  Sender: FDA-Public Use
  Company Number: JP-PFIZER INC-2012127035

PATIENT
  Age: 73 Year
  Sex: Male

DRUGS (2)
  1. LIPITOR [Suspect]
     Dosage: 5 MG DAILY
     Route: 048
  2. AMLODIPINE [Concomitant]
     Dosage: UNK

REACTIONS (3)
  - MUSCULOSKELETAL STIFFNESS [None]
  - MUSCLE SPASMS [None]
  - ANGLE CLOSURE GLAUCOMA [None]
